FAERS Safety Report 6069578-9 (Version None)
Quarter: 2009Q1

REPORT INFORMATION
  Report Type: 
  Country: None (occurrence: None)
  Receive Date: 20090206
  Receipt Date: 20090123
  Transmission Date: 20090719
  Serious: Yes (Disabling)
  Sender: FDA-Public Use
  Company Number: CH-GENENTECH-276709

PATIENT

DRUGS (3)
  1. AVASTIN [Suspect]
     Indication: LUNG NEOPLASM MALIGNANT
     Route: 042
  2. GEMCITABINE [Concomitant]
     Indication: LUNG NEOPLASM MALIGNANT
  3. CISPLATIN [Concomitant]
     Indication: LUNG NEOPLASM MALIGNANT

REACTIONS (1)
  - ENCEPHALOPATHY [None]
